FAERS Safety Report 4807092-6 (Version None)
Quarter: 2005Q4

REPORT INFORMATION
  Report Type: 
  Country: None (occurrence: None)
  Receive Date: 20051024
  Receipt Date: 20051019
  Transmission Date: 20060501
  Serious: Yes (Hospitalization)
  Sender: FDA-Public Use
  Company Number: US-GLAXOSMITHKLINE-A0578769A

PATIENT
  Age: 63 Year
  Sex: Male

DRUGS (7)
  1. AVANDAMET [Suspect]
     Dosage: 1TAB TWICE PER DAY
     Route: 048
  2. AVANDIA [Suspect]
     Dosage: 4MG TWICE PER DAY
     Route: 048
  3. OXYCODONE AND ACETAMINOPHEN [Suspect]
     Dosage: 2TAB AS REQUIRED
     Route: 048
     Dates: start: 20051006, end: 20051018
  4. LIPITOR [Concomitant]
  5. UNIVASC [Concomitant]
  6. AMARYL [Concomitant]
  7. INSULIN [Concomitant]

REACTIONS (11)
  - ABDOMINAL PAIN UPPER [None]
  - BACK PAIN [None]
  - BLOOD GLUCOSE INCREASED [None]
  - DIARRHOEA [None]
  - FALL [None]
  - INSOMNIA [None]
  - INTERVERTEBRAL DISC DISORDER [None]
  - INTERVERTEBRAL DISC OPERATION [None]
  - NAUSEA [None]
  - STOMACH DISCOMFORT [None]
  - SURGERY [None]
